FAERS Safety Report 11739731 (Version 4)
Quarter: 2016Q1

REPORT INFORMATION
  Report Type: Spontaneous
  Country: JP (occurrence: JP)
  Receive Date: 20151113
  Receipt Date: 20160113
  Transmission Date: 20160525
  Serious: Yes (Death, Other)
  Sender: FDA-Public Use
  Company Number: JP-009507513-1511JPN005509

PATIENT
  Sex: Male

DRUGS (5)
  1. CANCIDAS [Suspect]
     Active Substance: CASPOFUNGIN ACETATE
     Indication: SYSTEMIC CANDIDA
     Dosage: 50 MG, ONCE A DAY
     Route: 041
     Dates: start: 201510, end: 201510
  2. CANCIDAS [Suspect]
     Active Substance: CASPOFUNGIN ACETATE
     Indication: SYSTEMIC CANDIDA
     Dosage: 70 MG, THE FIRST DAY
     Route: 041
     Dates: start: 201510, end: 201510
  3. AMBISOME [Concomitant]
     Active Substance: AMPHOTERICIN B
     Dosage: DAILY DOSAGE UNKNOWN
     Route: 065
     Dates: start: 201510
  4. MEROPEN [Concomitant]
     Active Substance: MEROPENEM
     Indication: INFECTION
     Dosage: DAILY DOSAGE UNKNOWN
     Route: 065
  5. PRODIF [Concomitant]
     Active Substance: FOSFLUCONAZOLE
     Dosage: DAILY DOSAGE UNKNOWN
     Route: 065
     Dates: start: 201509, end: 201510

REACTIONS (6)
  - Superinfection [Fatal]
  - Multiple organ dysfunction syndrome [Fatal]
  - Sepsis [Fatal]
  - Systemic candida [Recovered/Resolved]
  - Drug ineffective [Fatal]
  - Pancreatic injury [Fatal]

NARRATIVE: CASE EVENT DATE: 201510
